FAERS Safety Report 15999410 (Version 3)
Quarter: 2022Q2

REPORT INFORMATION
  Report Type: Spontaneous
  Country: US (occurrence: US)
  Receive Date: 20190225
  Receipt Date: 20220517
  Transmission Date: 20220721
  Serious: No
  Sender: FDA-Public Use
  Company Number: US-PFIZER INC-2019078402

PATIENT
  Age: 69 Year
  Sex: Female
  Weight: 74.84 kg

DRUGS (5)
  1. CYTOMEL [Suspect]
     Active Substance: LIOTHYRONINE SODIUM
     Indication: Autoimmune thyroiditis
     Dosage: 25 UG, DAILY
     Route: 048
     Dates: start: 2012
  2. CYTOMEL [Suspect]
     Active Substance: LIOTHYRONINE SODIUM
     Dosage: 12.5 UG, DAILY (5 MCG TABLET PLUS ANOTHER 5 MCG TABLET IS 10 MCG, AND ANOTHER HALF OF A TABLET GIVE)
     Route: 048
  3. CYTOMEL [Suspect]
     Active Substance: LIOTHYRONINE SODIUM
     Dosage: 25 UG, DAILY (12.5MCG IN THE MORNING AND IN THE EVENING)
     Route: 048
  4. CYTOMEL [Suspect]
     Active Substance: LIOTHYRONINE SODIUM
     Dosage: 5 UG, 2X/DAY (TWO OF THE 5MCG AT NIGHT)
     Dates: start: 2012
  5. CYTOMEL [Suspect]
     Active Substance: LIOTHYRONINE SODIUM
     Dosage: 22.5 UG (HALF OF THE 25MCG IN THE MORNING AND THEN SHE TAKES TWO OF THE 5MCG AT NIGHT)

REACTIONS (3)
  - Blood pressure fluctuation [Not Recovered/Not Resolved]
  - Dyspnoea [Unknown]
  - Off label use [Unknown]

NARRATIVE: CASE EVENT DATE: 20120101
